FAERS Safety Report 6998109-1 (Version None)
Quarter: 2010Q3

REPORT INFORMATION
  Report Type: 
  Country: None (occurrence: None)
  Receive Date: 20100920
  Receipt Date: 20100331
  Transmission Date: 20110219
  Serious: Yes (Hospitalization)
  Sender: FDA-Public Use
  Company Number: US-ASTRAZENECA-2009SE19598

PATIENT
  Age: 16808 Day
  Sex: Male
  Weight: 79.8 kg

DRUGS (13)
  1. SEROQUEL [Suspect]
     Indication: SLEEP DISORDER
     Route: 048
     Dates: start: 20011206
  2. SEROQUEL [Suspect]
     Dosage: 200 AT NIGHT
     Route: 048
     Dates: start: 20020823
  3. SEROQUEL [Suspect]
     Dosage: 300 AT NIGHT
     Route: 048
     Dates: end: 20021018
  4. SEROQUEL [Suspect]
     Dosage: 100 MG TWO AT BEDTIME
     Route: 048
     Dates: start: 20030207, end: 20041209
  5. ZOLOFT [Concomitant]
     Dates: end: 20020130
  6. WELLBUTRIN [Concomitant]
     Dates: start: 20020130
  7. AMBIEN [Concomitant]
  8. METHADONE [Concomitant]
     Indication: PAIN
     Dates: start: 20020722
  9. METHADONE [Concomitant]
     Dosage: THREE TIMES A WEEK
     Dates: start: 20020722
  10. ZYPREXA [Concomitant]
     Indication: SLEEP DISORDER
     Dosage: 5-10 MG TWICE A DAY
     Dates: start: 20021018, end: 20030207
  11. GLUCOTROL XL [Concomitant]
     Dates: start: 20041125
  12. TRICOR [Concomitant]
     Dates: start: 20041125
  13. KLONOPIN [Concomitant]
     Indication: SLEEP DISORDER
     Dosage: TWO AT BEDTIME
     Dates: start: 20041209

REACTIONS (1)
  - DIABETES MELLITUS [None]
